FAERS Safety Report 4590520-1 (Version None)
Quarter: 2005Q1

REPORT INFORMATION
  Report Type: 
  Country: None (occurrence: None)
  Receive Date: 20050218
  Receipt Date: 20050218
  Transmission Date: 20050727
  Serious: Yes (Other)
  Sender: FDA-Public Use
  Company Number: None

PATIENT
  Age: 69 Year
  Sex: Male

DRUGS (1)
  1. PROPRANOLOL [Suspect]
     Indication: SUPRAVENTRICULAR EXTRASYSTOLES
     Dosage: 20 MG PO TID
     Route: 048
     Dates: start: 20050211

REACTIONS (2)
  - ARRHYTHMIA [None]
  - PHARMACEUTICAL PRODUCT COMPLAINT [None]
